FAERS Safety Report 8965461 (Version 1)
Quarter: 2012Q4

REPORT INFORMATION
  Report Type: Report from Study
  Country: IN (occurrence: IN)
  Receive Date: 20121213
  Receipt Date: 20121213
  Transmission Date: 20130627
  Serious: Yes (Death, Hospitalization)
  Sender: FDA-Public Use
  Company Number: IN-ROCHE-1168549

PATIENT
  Age: 72 Year
  Sex: Male
  Weight: 67.1 kg

DRUGS (5)
  1. METHOXY POLYETHYLENE GLYCOL-EPOETIN BETA [Suspect]
     Indication: RENAL FAILURE CHRONIC
     Route: 042
  2. INSULIN [Concomitant]
     Indication: DIABETES MELLITUS
     Dosage: 4-6-4
     Route: 058
     Dates: start: 20110810
  3. ISMO [Concomitant]
     Indication: HYPERTENSION
     Route: 048
     Dates: start: 20110810
  4. CLOPITAB [Concomitant]
     Indication: HYPERTENSION
     Route: 048
     Dates: start: 20110810
  5. MINIPRESS [Concomitant]
     Indication: HYPERTENSION
     Route: 048
     Dates: start: 20110810

REACTIONS (2)
  - Hip fracture [Fatal]
  - Sepsis [Fatal]
